FAERS Safety Report 7263360-2 (Version None)
Quarter: 2011Q1

REPORT INFORMATION
  Report Type: 
  Country: None (occurrence: None)
  Receive Date: 20110130
  Receipt Date: 20100921
  Transmission Date: 20110831
  Serious: No
  Sender: FDA-Public Use
  Company Number: US-ABBOTT-10P-163-0673456-00

PATIENT
  Sex: Female
  Weight: 79.45 kg

DRUGS (4)
  1. ATENOLOL [Concomitant]
     Indication: PRODUCT USED FOR UNKNOWN INDICATION
  2. HUMIRA [Suspect]
     Dates: start: 20100601, end: 20100601
  3. HUMIRA [Suspect]
     Indication: PSORIASIS
     Dates: start: 20040101, end: 20090901
  4. LISINOPRIL [Concomitant]
     Indication: PRODUCT USED FOR UNKNOWN INDICATION

REACTIONS (4)
  - CANDIDIASIS [None]
  - RASH MACULAR [None]
  - FURUNCLE [None]
  - PSORIASIS [None]
